FAERS Safety Report 6935437-X (Version None)
Quarter: 2010Q3

REPORT INFORMATION
  Report Type: 
  Country: None (occurrence: None)
  Receive Date: 20100823
  Receipt Date: 20100812
  Transmission Date: 20110219
  Serious: No
  Sender: FDA-Public Use
  Company Number: US-BIOGENIDEC-2010BI022425

PATIENT
  Age: 37 Year
  Sex: Female

DRUGS (2)
  1. TYSABRI [Suspect]
     Indication: MULTIPLE SCLEROSIS
     Route: 042
     Dates: start: 20080118, end: 20090423
  2. TYSABRI [Suspect]
     Route: 042
     Dates: start: 20100108

REACTIONS (5)
  - ARTHRALGIA [None]
  - BACK PAIN [None]
  - FATIGUE [None]
  - HEADACHE [None]
  - URINARY TRACT INFECTION [None]
